FAERS Safety Report 8491703-0 (Version None)
Quarter: 2012Q3

REPORT INFORMATION
  Report Type: 
  Country: None (occurrence: None)
  Receive Date: 20120706
  Receipt Date: 20120626
  Transmission Date: 20120928
  Serious: Yes (Death, Hospitalization, Other)
  Sender: FDA-Public Use
  Company Number: JP-BRISTOL-MYERS SQUIBB COMPANY-16699688

PATIENT
  Age: 49 Year
  Sex: Female

DRUGS (12)
  1. CARBOPLATIN [Suspect]
     Indication: PERITONEAL CARCINOMA METASTATIC
     Dosage: 1DF=AUC5 ALSO AUC4
  2. CYTARABINE [Suspect]
     Indication: PERITONEAL CARCINOMA METASTATIC
     Route: 037
  3. METHOTREXATE [Suspect]
     Indication: PERITONEAL CARCINOMA METASTATIC
     Route: 037
  4. MITOMYCIN [Suspect]
     Indication: PERITONEAL CARCINOMA METASTATIC
     Dosage: INJ
  5. CYCLOPHOSPHAMIDE [Suspect]
     Indication: PERITONEAL CARCINOMA METASTATIC
     Dosage: CYCLOPHOSPHAMIDE HYDRATE DAY1 ALSO 600MG/M2
  6. PREDNISOLONE [Suspect]
     Indication: PERITONEAL CARCINOMA METASTATIC
     Route: 037
  7. DOXIL [Suspect]
     Indication: PERITONEAL CARCINOMA METASTATIC
  8. IRINOTECAN HCL [Suspect]
     Indication: PERITONEAL CARCINOMA METASTATIC
     Dosage: ON DAY 1, 15
  9. EPIRUBICIN HYDROCHLORIDE [Suspect]
     Indication: PERITONEAL CARCINOMA METASTATIC
     Dosage: DAY1
  10. NEDAPLATIN [Suspect]
     Indication: PERITONEAL CARCINOMA METASTATIC
     Dosage: ALSO 60MG/M2,12MG/M2(DAYS1-15),120MG/M2
     Route: 033
  11. PACLITAXEL [Suspect]
     Indication: PERITONEAL CARCINOMA METASTATIC
  12. DOCETAXEL [Suspect]
     Indication: PERITONEAL CARCINOMA METASTATIC

REACTIONS (6)
  - PANCYTOPENIA [None]
  - SWELLING [None]
  - NEOPLASM MALIGNANT [None]
  - NEUROLOGICAL SYMPTOM [None]
  - RASH [None]
  - GENERALISED OEDEMA [None]
